FAERS Safety Report 9002395 (Version 1)
Quarter: 2013Q1

REPORT INFORMATION
  Report Type: Report from Study
  Country: JP (occurrence: JP)
  Receive Date: 20130107
  Receipt Date: 20130107
  Transmission Date: 20140127
  Serious: Yes (Death, Hospitalization, Other)
  Sender: FDA-Public Use
  Company Number: PHHY2012JP122321

PATIENT
  Age: 34 Year
  Sex: Female

DRUGS (1)
  1. LEPONEX / CLOZARIL [Suspect]
     Indication: SCHIZOPHRENIA
     Dosage: 150 MG, UNK
     Route: 048
     Dates: start: 20120801, end: 20120901

REACTIONS (5)
  - Sepsis [Fatal]
  - Myocarditis [Unknown]
  - Blood creatinine increased [Unknown]
  - Pyrexia [Unknown]
  - White blood cell count increased [Unknown]
